FAERS Safety Report 24539634 (Version 3)
Quarter: 2024Q4

REPORT INFORMATION
  Report Type: Spontaneous
  Country: CA (occurrence: CA)
  Receive Date: 20241023
  Receipt Date: 20241123
  Transmission Date: 20250114
  Serious: Yes (Other)
  Sender: CELLTRION
  Company Number: CA-PFIZER INC-202400257275

PATIENT

DRUGS (4)
  1. INFLECTRA [Suspect]
     Active Substance: INFLIXIMAB-DYYB
     Indication: Crohn^s disease
     Dosage: 400 MG, WEEKS 0,2,6 THEN EVERY 4 WEEKS, (HOSPITAL INFUSION)
     Route: 042
     Dates: start: 20240907
  2. INFLECTRA [Suspect]
     Active Substance: INFLIXIMAB-DYYB
     Dosage: 400 MG, 2 WEEKS AND 2 DAYS (WEEK 2)
     Route: 042
     Dates: start: 20240923
  3. INFLECTRA [Suspect]
     Active Substance: INFLIXIMAB-DYYB
     Dosage: 400 MG (400 MG, WEEKS 0,2,6 THEN Q 4 WEEKS)
     Route: 042
     Dates: start: 20241016
  4. INFLECTRA [Suspect]
     Active Substance: INFLIXIMAB-DYYB
     Dosage: 400 MG, 4 WEEKS (400 MG, WEEKS 0,2,6 THEN Q 4 WEEKS)
     Route: 042
     Dates: start: 20241112

REACTIONS (7)
  - Uveitis [Recovered/Resolved]
  - Arthralgia [Recovered/Resolved]
  - Headache [Recovered/Resolved]
  - Off label use [Unknown]
  - Off label use [Unknown]
  - Intentional product use issue [Unknown]
  - Fatigue [Recovered/Resolved]

NARRATIVE: CASE EVENT DATE: 20240101
